FAERS Safety Report 20908044 (Version 1)
Quarter: 2022Q2

REPORT INFORMATION
  Report Type: Spontaneous
  Country: FR (occurrence: FR)
  Receive Date: 20220602
  Receipt Date: 20220602
  Transmission Date: 20220721
  Serious: Yes (Hospitalization, Other)
  Sender: FDA-Public Use
  Company Number: FR-002147023-NVSC2022FR109745

PATIENT

DRUGS (8)
  1. REMICADE [Suspect]
     Active Substance: INFLIXIMAB
     Indication: Macular oedema
     Dosage: 5 MG/KG AT WEEK 0, 2, 6, AND EVERY 4-6 WEEKS
     Route: 042
  2. ADALIMUMAB [Suspect]
     Active Substance: ADALIMUMAB
     Indication: Macular oedema
     Route: 058
  3. ADALIMUMAB [Suspect]
     Active Substance: ADALIMUMAB
     Route: 058
  4. TOCILIZUMAB [Suspect]
     Active Substance: TOCILIZUMAB
     Indication: Macular oedema
     Route: 042
  5. TOCILIZUMAB [Suspect]
     Active Substance: TOCILIZUMAB
     Route: 058
  6. METHOTREXATE [Concomitant]
     Active Substance: METHOTREXATE
  7. MYCOPHENOLATE MOFETIL [Concomitant]
     Active Substance: MYCOPHENOLATE MOFETIL
  8. AZATHIOPRINE [Concomitant]
     Active Substance: AZATHIOPRINE

REACTIONS (14)
  - Autoimmune disorder [Unknown]
  - Bacteraemia [Unknown]
  - Meningitis [Unknown]
  - Abscess [Unknown]
  - Hepatitis B [Unknown]
  - Pyelonephritis [Unknown]
  - Skin cancer [Unknown]
  - Pneumonia [Unknown]
  - Hypersensitivity [Unknown]
  - Herpes virus infection [Unknown]
  - Skin infection [Unknown]
  - Arthritis [Unknown]
  - Pyrexia [Unknown]
  - Off label use [Unknown]
